FAERS Safety Report 16184833 (Version 1)
Quarter: 2019Q2

REPORT INFORMATION
  Report Type: Spontaneous
  Country: US (occurrence: US)
  Receive Date: 20190411
  Receipt Date: 20190411
  Transmission Date: 20190711
  Serious: No
  Sender: FDA-Public Use
  Company Number: US-PIERREL PHARMA S.P.A.-2018PIR00002

PATIENT
  Age: 31 Year
  Sex: Female

DRUGS (3)
  1. LEXAPRO [Concomitant]
     Active Substance: ESCITALOPRAM OXALATE
  2. ADDERALL [Concomitant]
     Active Substance: AMPHETAMINE ASPARTATE\AMPHETAMINE SULFATE\DEXTROAMPHETAMINE SACCHARATE\DEXTROAMPHETAMINE SULFATE
  3. ORABLOC [Suspect]
     Active Substance: ARTICAINE HYDROCHLORIDE\EPINEPHRINE BITARTRATE
     Indication: LOCAL ANAESTHESIA
     Dosage: 3.5 DOSAGE UNITS (CARPULES), ONCE OVER 30 MINUTE TIME PERIOD
     Route: 004
     Dates: start: 20180108, end: 20180108

REACTIONS (1)
  - Drug ineffective [Recovered/Resolved]

NARRATIVE: CASE EVENT DATE: 20180108
